FAERS Safety Report 6551326-7 (Version None)
Quarter: 2010Q1

REPORT INFORMATION
  Report Type: 
  Country: None (occurrence: None)
  Receive Date: 20100120
  Receipt Date: 20100114
  Transmission Date: 20100710
  Serious: Yes (Other)
  Sender: FDA-Public Use
  Company Number: 2009SP037039

PATIENT
  Age: 74 Year
  Sex: Male

DRUGS (9)
  1. REFLEX (MIRTRAZAPINE) [Suspect]
     Indication: DEPRESSION
     Dosage: 15 MG;QD;PO
     Route: 048
     Dates: start: 20091107, end: 20091109
  2. SILODOSIN [Concomitant]
  3. URSODEOXYCHOLIC ACID [Concomitant]
  4. ALENDRONATE SODIUM [Concomitant]
  5. ZOLPIDEM TARTRATE [Concomitant]
  6. SULPRIDE [Concomitant]
  7. MAGNESIUM OXIDE [Concomitant]
  8. THIAMAZOLE [Concomitant]
  9. TOLEDOMIN [Concomitant]

REACTIONS (4)
  - ANXIETY [None]
  - CONVULSION [None]
  - SEROTONIN SYNDROME [None]
  - TIC [None]
